FAERS Safety Report 7971108-9 (Version None)
Quarter: 2011Q4

REPORT INFORMATION
  Report Type: 
  Country: None (occurrence: None)
  Receive Date: 20111212
  Receipt Date: 20111212
  Transmission Date: 20120403
  Serious: Yes (Other)
  Sender: FDA-Public Use
  Company Number: None

PATIENT
  Age: 87 Year
  Sex: Male
  Weight: 66.224 kg

DRUGS (1)
  1. VIIBRYD [Suspect]
     Indication: DEPRESSION
     Dosage: ONCE
     Route: 048
     Dates: start: 20111025, end: 20111130

REACTIONS (3)
  - NOCTURIA [None]
  - RASH PRURITIC [None]
  - ANGIOPATHY [None]
